FAERS Safety Report 4575662-9 (Version None)
Quarter: 2005Q1

REPORT INFORMATION
  Report Type: 
  Country: None (occurrence: None)
  Receive Date: 20050209
  Receipt Date: 20050204
  Transmission Date: 20050727
  Serious: Yes (Hospitalization)
  Sender: FDA-Public Use
  Company Number: DE-GLAXOSMITHKLINE-D0045821A

PATIENT
  Age: 65 Year
  Sex: Female

DRUGS (4)
  1. QUILONUM RETARD [Suspect]
     Indication: BIPOLAR I DISORDER
     Dosage: 675MG PER DAY
     Dates: start: 20020524
  2. ZELDOX [Suspect]
     Dosage: 80MG PER DAY
     Route: 065
     Dates: start: 20020604, end: 20020617
  3. REMERGIL [Suspect]
     Dosage: 30MG PER DAY
     Route: 065
     Dates: start: 20020612
  4. LORAZEPAM [Concomitant]
     Dosage: .5MG PER DAY
     Route: 065
     Dates: start: 20010922, end: 20020620

REACTIONS (5)
  - DRUG INTERACTION [None]
  - DYSTONIA [None]
  - EXTRAPYRAMIDAL DISORDER [None]
  - GAIT DISTURBANCE [None]
  - PLEUROTHOTONUS [None]
